FAERS Safety Report 4962787-9 (Version None)
Quarter: 2006Q2

REPORT INFORMATION
  Report Type: 
  Country: None (occurrence: None)
  Receive Date: 20060404
  Receipt Date: 20050112
  Transmission Date: 20061013
  Serious: Yes (Hospitalization, Disabling)
  Sender: FDA-Public Use
  Company Number: US-MERCK-0501USA02348

PATIENT
  Age: 30 Year
  Sex: Male
  Weight: 103 kg

DRUGS (2)
  1. VIOXX [Suspect]
     Indication: LIMB INJURY
     Route: 048
     Dates: start: 20030101, end: 20030401
  2. VIOXX [Suspect]
     Route: 048
     Dates: start: 20030101, end: 20030401

REACTIONS (13)
  - ACUTE MYOCARDIAL INFARCTION [None]
  - AKINESIA [None]
  - ARTERIAL OCCLUSIVE DISEASE [None]
  - BLOOD GLUCOSE ABNORMAL [None]
  - CONSTIPATION [None]
  - CORONARY ARTERY DISEASE [None]
  - DYSLIPIDAEMIA [None]
  - FATIGUE [None]
  - GASTROOESOPHAGEAL REFLUX DISEASE [None]
  - POLLAKIURIA [None]
  - REPERFUSION ARRHYTHMIA [None]
  - VENTRICULAR DYSFUNCTION [None]
  - WEIGHT INCREASED [None]
